FAERS Safety Report 5238487-7 (Version None)
Quarter: 2007Q1

REPORT INFORMATION
  Report Type: 
  Country: None (occurrence: None)
  Receive Date: 20070215
  Receipt Date: 20070202
  Transmission Date: 20070707
  Serious: Yes (Other)
  Sender: FDA-Public Use
  Company Number: DE-ROCHE-480351

PATIENT
  Age: 32 Year
  Sex: Female
  Weight: 77 kg

DRUGS (1)
  1. TAMIFLU [Suspect]
     Indication: INFLUENZA
     Dosage: DOSAGE REGIMEN: 2X1 CAPS
     Route: 065
     Dates: start: 20070116, end: 20070118

REACTIONS (5)
  - CARDIOVASCULAR DISORDER [None]
  - HEPATIC ENZYME INCREASED [None]
  - OEDEMA [None]
  - PARAESTHESIA [None]
  - VOMITING [None]
